FAERS Safety Report 6657305-3 (Version None)
Quarter: 2010Q1

REPORT INFORMATION
  Report Type: 
  Country: None (occurrence: None)
  Receive Date: 20100330
  Receipt Date: 20100324
  Transmission Date: 20100710
  Serious: Yes (Death)
  Sender: FDA-Public Use
  Company Number: US-SANOFI-AVENTIS-2010SA009519

PATIENT
  Age: 68 Year
  Sex: Male

DRUGS (7)
  1. LOVENOX [Suspect]
     Route: 058
     Dates: start: 20100129, end: 20100207
  2. LOVENOX [Suspect]
     Route: 058
     Dates: start: 20100129, end: 20100207
  3. PREDNISONE TAB [Concomitant]
  4. NEXIUM /UNK/ [Concomitant]
  5. TAMSULOSIN HYDROCHLORIDE [Concomitant]
     Dosage: 1 PER DAY
  6. VITAMIN B-12 [Concomitant]
  7. ALL OTHER THERAPEUTIC PRODUCTS [Concomitant]

REACTIONS (3)
  - CHEST PAIN [None]
  - DYSPNOEA [None]
  - PULMONARY EMBOLISM [None]
